FAERS Safety Report 9742034 (Version 2)
Quarter: 2014Q1

REPORT INFORMATION
  Report Type: Report from Study
  Country: US (occurrence: US)
  Receive Date: 20131210
  Receipt Date: 20140216
  Transmission Date: 20141002
  Serious: Yes (Death, Hospitalization)
  Sender: FDA-Public Use
  Company Number: US-ROCHE-1311072

PATIENT
  Age: 74 Year
  Sex: Female

DRUGS (11)
  1. TARCEVA [Suspect]
     Indication: LUNG ADENOCARCINOMA METASTATIC
     Dosage: DAILY
     Route: 065
  2. VALIUM [Suspect]
     Indication: ANXIETY
     Dosage: PRN
     Route: 065
  3. XARELTO [Concomitant]
     Dosage: DAILY
     Route: 065
  4. AMIODARONE [Concomitant]
     Dosage: DAILY
     Route: 065
  5. ATENOLOL [Concomitant]
     Dosage: DAILY
     Route: 065
  6. MARINOL (UNITED STATES) [Concomitant]
     Dosage: BID
     Route: 065
  7. DYAZIDE [Concomitant]
     Route: 065
  8. LEVAQUIN [Concomitant]
     Indication: URINARY TRACT INFECTION
     Dosage: DAILY
     Route: 065
  9. SINGULAIR [Concomitant]
     Dosage: DAILY
     Route: 065
  10. COUMADIN [Concomitant]
  11. CITALOPRAM [Concomitant]
     Route: 065

REACTIONS (18)
  - Death [Fatal]
  - Neoplasm [Unknown]
  - Pericardial effusion malignant [Unknown]
  - Thrombosis [Unknown]
  - Neutropenia [Unknown]
  - Thrombocytopenia [Unknown]
  - Laceration [Unknown]
  - Laboratory test abnormal [Unknown]
  - Conjunctival discolouration [Unknown]
  - Lymphadenopathy [Unknown]
  - Atelectasis [Unknown]
  - Pleural effusion [Unknown]
  - Pericardial effusion [Unknown]
  - Lymphadenopathy [Unknown]
  - Atrial fibrillation [Unknown]
  - Rash [Unknown]
  - Ecchymosis [Unknown]
  - Dry skin [Unknown]
